FAERS Safety Report 8805695 (Version 1)
Quarter: 2012Q4

REPORT INFORMATION
  Report Type: 
  Country: US (occurrence: US)
  Receive Date: 20120924
  Receipt Date: 20120924
  Transmission Date: 20130627
  Serious: Yes (Hospitalization)
  Sender: FDA-Public Use
  Company Number: US-BAYER-2012-097650

PATIENT
  Age: 48 Year
  Sex: Female
  Weight: 48 kg

DRUGS (7)
  1. NEO-SYNEPHRINE [Suspect]
     Indication: NASAL CONGESTION
     Dosage: 1 DF, TID
     Route: 045
     Dates: start: 2002, end: 201208
  2. MOTRIN [Concomitant]
  3. CEPHALEXIN [Concomitant]
  4. AFRIN [Concomitant]
  5. VICKS SINUS [Concomitant]
  6. CVS BRAND NASAL DECONGESTANT [Concomitant]
  7. SYNTHROID [Concomitant]

REACTIONS (2)
  - Leukopenia [Not Recovered/Not Resolved]
  - Neutropenia [Not Recovered/Not Resolved]
